FAERS Safety Report 7593359-8 (Version None)
Quarter: 2011Q3

REPORT INFORMATION
  Report Type: 
  Country: None (occurrence: None)
  Receive Date: 20110706
  Receipt Date: 20110630
  Transmission Date: 20111222
  Serious: Yes (Death, Other)
  Sender: FDA-Public Use
  Company Number: US-ACTELION-A-US2011-49849

PATIENT

DRUGS (1)
  1. EPOPROSTENOL SODIUM [Suspect]
     Indication: PULMONARY ARTERIAL HYPERTENSION
     Dosage: 28.5 NG/KG, PER MIN
     Route: 042
     Dates: start: 20100730

REACTIONS (3)
  - DEATH [None]
  - DIZZINESS [None]
  - DRUG ADMINISTRATION ERROR [None]
